FAERS Safety Report 24326609 (Version 2)
Quarter: 2024Q4

REPORT INFORMATION
  Report Type: Report from Study
  Country: IN (occurrence: IN)
  Receive Date: 20240917
  Receipt Date: 20241203
  Transmission Date: 20250115
  Serious: Yes (Death, Other)
  Sender: ROCHE
  Company Number: IN-ROCHE-10000055018

PATIENT
  Age: 62 Year
  Sex: Male

DRUGS (1)
  1. TECENTRIQ [Suspect]
     Active Substance: ATEZOLIZUMAB
     Indication: Hepatocellular carcinoma
     Route: 042
     Dates: start: 20240314

REACTIONS (4)
  - Haemoglobin decreased [Unknown]
  - Haemolytic anaemia [Recovered/Resolved]
  - Autoimmune disorder [Recovered/Resolved]
  - Cardiac arrest [Fatal]
